FAERS Safety Report 19761098 (Version 1)
Quarter: 2021Q3

REPORT INFORMATION
  Report Type: Spontaneous
  Country: US (occurrence: US)
  Receive Date: 20210827
  Receipt Date: 20210827
  Transmission Date: 20211014
  Serious: Yes (Disabling)
  Sender: FDA-Public Use
  Company Number: None

PATIENT
  Sex: Female

DRUGS (1)
  1. DEPO?PROVERA [Suspect]
     Active Substance: MEDROXYPROGESTERONE ACETATE
     Route: 058
     Dates: start: 20210618

REACTIONS (2)
  - Drug ineffective [None]
  - Heavy menstrual bleeding [None]

NARRATIVE: CASE EVENT DATE: 20210701
